FAERS Safety Report 14961129 (Version 1)
Quarter: 2018Q2

REPORT INFORMATION
  Report Type: Spontaneous
  Country: FR (occurrence: FR)
  Receive Date: 20180601
  Receipt Date: 20180601
  Transmission Date: 20180711
  Serious: Yes (Death)
  Sender: FDA-Public Use
  Company Number: FR-TEVA-2018-FR-899722

PATIENT
  Age: 96 Year
  Sex: Male

DRUGS (8)
  1. TRIMETAZIDINE (DICHLORHYDRATE DE) [Suspect]
     Active Substance: TRIMETAZIDINE
     Route: 048
     Dates: end: 200908
  2. MEBEVERINE (CHLORHYDRATE DE) [Suspect]
     Active Substance: MEBEVERINE HYDROCHLORIDE
     Route: 065
  3. TRIATEC (RAMIPRIL) [Suspect]
     Active Substance: RAMIPRIL
     Route: 065
  4. KARDEGIC [Suspect]
     Active Substance: ASPIRIN DL-LYSINE
     Route: 048
     Dates: end: 200908
  5. SPAGULAX [Suspect]
     Active Substance: PLANTAGO OVATA SEED
     Route: 065
  6. PERMIXON [Suspect]
     Active Substance: HERBALS\SAW PALMETTO
     Route: 065
  7. INEXIUM [Suspect]
     Active Substance: ESOMEPRAZOLE
     Route: 048
     Dates: end: 200908
  8. FUROSEMIDE. [Suspect]
     Active Substance: FUROSEMIDE
     Route: 048

REACTIONS (3)
  - Multiple organ dysfunction syndrome [None]
  - Jaundice [Fatal]
  - Cholestasis [Fatal]

NARRATIVE: CASE EVENT DATE: 200908
